FAERS Safety Report 7010268 (Version 2)
Quarter: 2014Q3

REPORT INFORMATION
  Report Type: Spontaneous
  Country: US (occurrence: None)
  Receive Date: 20090526
  Receipt Date: 20140922
  Transmission Date: 20150326
  Serious: Yes (Hospitalization, Other)
  Sender: FDA-Public Use
  Company Number: 2009S1004146

PATIENT
  Age: 70 Year
  Sex: Female

DRUGS (10)
  1. PHOSPHO-SODA [Suspect]
     Active Substance: SODIUM PHOSPHATE, DIBASIC\SODIUM PHOSPHATE, MONOBASIC
     Indication: COLONOSCOPY
     Dosage: PO
     Route: 048
     Dates: start: 20060702, end: 20060703
  2. NORVASC [Concomitant]
     Active Substance: AMLODIPINE BESYLATE
  3. COREG [Concomitant]
     Active Substance: CARVEDILOL
  4. ASPIRIN (ACETYLSALICYLIC ACID) [Concomitant]
     Active Substance: ASPIRIN
  5. LOPRESSOR [Concomitant]
     Active Substance: METOPROLOL TARTRATE
  6. GLUCOTROL [Concomitant]
     Active Substance: GLIPIZIDE
  7. PROTONIX [Concomitant]
     Active Substance: PANTOPRAZOLE SODIUM
  8. FLEET [Suspect]
     Active Substance: BISACODYL\GLYCERIN\MINERAL OIL\SODIUM PHOSPHATE, DIBASIC\SODIUM PHOSPHATE, MONOBASIC
     Indication: COLONOSCOPY
     Route: 054
  9. DIOVAN/HCTZ (HYDROCHLOROTHIAZIDE) [Concomitant]
  10. PLAVIX [Concomitant]
     Active Substance: CLOPIDOGREL BISULFATE

REACTIONS (18)
  - Haemodialysis [None]
  - Haemorrhoidal haemorrhage [None]
  - Tubulointerstitial nephritis [None]
  - Rhabdomyolysis [None]
  - Renal tubular disorder [None]
  - Metabolic acidosis [None]
  - Diabetic complication [None]
  - Chest pain [None]
  - Nephrogenic anaemia [None]
  - Renal arteriosclerosis [None]
  - Renal failure acute [None]
  - Hyperkalaemia [None]
  - Glomerulosclerosis [None]
  - Disease progression [None]
  - Gastrointestinal haemorrhage [None]
  - Refusal of treatment by patient [None]
  - Renal failure [None]
  - Renal failure chronic [None]

NARRATIVE: CASE EVENT DATE: 200607
